FAERS Safety Report 14760018 (Version 1)
Quarter: 2018Q2

REPORT INFORMATION
  Report Type: Report from Study
  Country: None (occurrence: US)
  Receive Date: 20180413
  Receipt Date: 20180413
  Transmission Date: 20180711
  Serious: Yes (Death)
  Sender: FDA-Public Use
  Company Number: US-BAUSCH-BL-2018-010481

PATIENT
  Sex: Female

DRUGS (2)
  1. XENAZINE [Suspect]
     Active Substance: TETRABENAZINE
     Indication: DYSTONIA
     Route: 048
     Dates: start: 20160725, end: 20170203
  2. TETRABENAZINE. [Suspect]
     Active Substance: TETRABENAZINE
     Indication: PRODUCT USED FOR UNKNOWN INDICATION
     Route: 065

REACTIONS (2)
  - Off label use [Unknown]
  - Pneumonia [Fatal]
